FAERS Safety Report 16572973 (Version 1)
Quarter: 2019Q3

REPORT INFORMATION
  Report Type: Spontaneous
  Country: US (occurrence: US)
  Receive Date: 20190715
  Receipt Date: 20190715
  Transmission Date: 20191004
  Serious: No
  Sender: FDA-Public Use
  Company Number: US-JUBILANT CADISTA PHARMACEUTICALS-2019JUB00108

PATIENT
  Sex: Male
  Weight: 74.83 kg

DRUGS (7)
  1. CLONAZEPAM. [Concomitant]
     Active Substance: CLONAZEPAM
  2. PAROXETINE. [Concomitant]
     Active Substance: PAROXETINE
  3. ATORVASTATIN [Concomitant]
     Active Substance: ATORVASTATIN
  4. LOSARTAN. [Concomitant]
     Active Substance: LOSARTAN
  5. DONEPEZIL HYDROCHLORIDE. [Suspect]
     Active Substance: DONEPEZIL HYDROCHLORIDE
     Indication: AMNESIA
     Dosage: 20 MG, 1X/DAY AT BEDTIME
     Route: 048
     Dates: end: 201903
  6. TERAZOSIN [Concomitant]
     Active Substance: TERAZOSIN HYDROCHLORIDE
  7. TRIAMTERENE. [Concomitant]
     Active Substance: TRIAMTERENE

REACTIONS (5)
  - Insomnia [Recovering/Resolving]
  - Off label use [Recovered/Resolved]
  - Somnambulism [Recovering/Resolving]
  - Memory impairment [Not Recovered/Not Resolved]
  - Restlessness [Recovering/Resolving]
